FAERS Safety Report 8600983-X (Version None)
Quarter: 2012Q3

REPORT INFORMATION
  Report Type: 
  Country: None (occurrence: None)
  Receive Date: 20120817
  Receipt Date: 20120814
  Transmission Date: 20120928
  Serious: No
  Sender: FDA-Public Use
  Company Number: US-PFIZER INC-2012140508

PATIENT
  Sex: Male

DRUGS (3)
  1. GABAPENTIN [Suspect]
  2. GABAPENTIN [Suspect]
     Dosage: 300 MG, 4X/DAY
     Dates: start: 20120601
  3. GABAPENTIN [Suspect]
     Dosage: 300 MG
     Route: 048

REACTIONS (10)
  - FATIGUE [None]
  - ABNORMAL BEHAVIOUR [None]
  - DRUG INEFFECTIVE [None]
  - FEELING ABNORMAL [None]
  - PHOBIA [None]
  - DEPRESSED MOOD [None]
  - PARANOIA [None]
  - CONFUSIONAL STATE [None]
  - MUSCLE SPASMS [None]
  - MYALGIA [None]
